FAERS Safety Report 6603306-0 (Version None)
Quarter: 2010Q1

REPORT INFORMATION
  Report Type: 
  Country: None (occurrence: None)
  Receive Date: 20100226
  Receipt Date: 20091116
  Transmission Date: 20100710
  Serious: Yes (Other)
  Sender: FDA-Public Use
  Company Number: A0758111A

PATIENT
  Age: 27 Year
  Sex: Female
  Weight: 69.5 kg

DRUGS (5)
  1. VALTREX [Suspect]
     Dosage: 1000MG PER DAY
     Route: 048
     Dates: start: 20050101
  2. ZYRTEC [Concomitant]
  3. FLUDROCORTISONE [Concomitant]
  4. VITAMIN TAB [Concomitant]
  5. DOCOSAHEXAENOIC ACID [Concomitant]

REACTIONS (3)
  - DRUG EXPOSURE DURING PREGNANCY [None]
  - HERPES SIMPLEX [None]
  - LIVE BIRTH [None]
